FAERS Safety Report 11807188 (Version 2)
Quarter: 2016Q1

REPORT INFORMATION
  Report Type: Spontaneous
  Country: US (occurrence: US)
  Receive Date: 20151207
  Receipt Date: 20160120
  Transmission Date: 20160525
  Serious: No
  Sender: FDA-Public Use
  Company Number: US-ACTELION PHARMACEUTICALS US, INC.-A-US2015-128075

PATIENT
  Age: 59 Year
  Sex: Female

DRUGS (7)
  1. VALCHLOR [Suspect]
     Active Substance: MECHLORETHAMINE
     Dosage: UNK UNK, QD
     Route: 061
  2. TOPICORT [Concomitant]
     Active Substance: DESOXIMETASONE
  3. VITAMIN B [Concomitant]
     Active Substance: VITAMIN B
  4. TRIAMTERENE. [Concomitant]
     Active Substance: TRIAMTERENE
  5. LIPITOR [Concomitant]
     Active Substance: ATORVASTATIN CALCIUM
  6. VALCHLOR [Suspect]
     Active Substance: MECHLORETHAMINE
     Indication: MYCOSIS FUNGOIDES
     Dosage: UNK, DAILY
     Route: 061
     Dates: start: 20150616
  7. ASPIRIN. [Concomitant]
     Active Substance: ASPIRIN

REACTIONS (3)
  - Application site pain [Unknown]
  - Application site vesicles [Recovered/Resolved]
  - Application site pruritus [Recovered/Resolved]
